FAERS Safety Report 6026278-9 (Version None)
Quarter: 2008Q4

REPORT INFORMATION
  Report Type: 
  Country: None (occurrence: None)
  Receive Date: 20081230
  Receipt Date: 20081215
  Transmission Date: 20090506
  Serious: Yes (Death, Life-Threatening, Hospitalization, Disabling, Other)
  Sender: FDA-Public Use
  Company Number: 2008AL012069

PATIENT
  Age: 94 Year
  Sex: Female

DRUGS (11)
  1. DICLOFENAC SODIUM [Suspect]
     Dosage: 50 MG; TID; PO
     Route: 048
     Dates: start: 20080820, end: 20080905
  2. IBUPROFEN [Suspect]
     Indication: OSTEOARTHRITIS
     Dosage: 400 MG; TID; PO
     Route: 048
     Dates: start: 20080816, end: 20080820
  3. ACETYLSALICYLIC ACID [Concomitant]
  4. PARACETAMOL [Concomitant]
  5. FERROUS SULPHATE [Concomitant]
  6. CEPHALEXIN [Concomitant]
  7. BENDROFLUMETHIAZIDE [Concomitant]
  8. TRAMADOL HCL [Concomitant]
  9. NIFEDIPINE [Concomitant]
  10. ALENDRONIC ACID [Concomitant]
  11. DALTEPARIN SODIUM [Concomitant]

REACTIONS (3)
  - GASTROINTESTINAL HAEMORRHAGE [None]
  - GENERAL PHYSICAL HEALTH DETERIORATION [None]
  - OSTEOARTHRITIS [None]
